FAERS Safety Report 16214799 (Version 1)
Quarter: 2019Q2

REPORT INFORMATION
  Report Type: Spontaneous
  Country: US (occurrence: US)
  Receive Date: 20190418
  Receipt Date: 20190418
  Transmission Date: 20190711
  Serious: Yes (Other)
  Sender: FDA-Public Use
  Company Number: None

PATIENT
  Age: 33 Year
  Sex: Female
  Weight: 60.75 kg

DRUGS (7)
  1. CYMBALTA [Suspect]
     Active Substance: DULOXETINE HYDROCHLORIDE
     Indication: DEPRESSION
     Dosage: ?          QUANTITY:1 CAPSULE(S);?
     Route: 048
  2. ADDERALL [Concomitant]
     Active Substance: AMPHETAMINE ASPARTATE\AMPHETAMINE SULFATE\DEXTROAMPHETAMINE SACCHARATE\DEXTROAMPHETAMINE SULFATE
  3. NEURONTIN [Concomitant]
     Active Substance: GABAPENTIN
  4. VITAMIN D [Concomitant]
     Active Substance: VITAMIN D NOS
  5. LEXAPRO [Concomitant]
     Active Substance: ESCITALOPRAM OXALATE
  6. MULTI VITAMIN [Concomitant]
     Active Substance: VITAMINS
  7. CYMBALTA [Suspect]
     Active Substance: DULOXETINE HYDROCHLORIDE
     Indication: FIBROMYALGIA
     Dosage: ?          QUANTITY:1 CAPSULE(S);?
     Route: 048

REACTIONS (6)
  - Depression [None]
  - Gastrointestinal disorder [None]
  - Myalgia [None]
  - Tremor [None]
  - Withdrawal syndrome [None]
  - Fatigue [None]

NARRATIVE: CASE EVENT DATE: 20190411
